FAERS Safety Report 7909528-0 (Version None)
Quarter: 2011Q4

REPORT INFORMATION
  Report Type: 
  Country: None (occurrence: None)
  Receive Date: 20111111
  Receipt Date: 20111107
  Transmission Date: 20120403
  Serious: Yes (Life-Threatening, Hospitalization, Disabling, Other)
  Sender: FDA-Public Use
  Company Number: DE-BAYER-2011-108838

PATIENT
  Age: 20 Year
  Sex: Female

DRUGS (2)
  1. LEVONORGESTREL + ETHINYL ESTRADIOL [Suspect]
  2. YASMIN [Suspect]

REACTIONS (8)
  - DIPLEGIA [None]
  - INTRACRANIAL VENOUS SINUS THROMBOSIS [None]
  - NAUSEA [None]
  - MIGRAINE [None]
  - VOMITING [None]
  - HEMIPARESIS [None]
  - SYNCOPE [None]
  - GRAND MAL CONVULSION [None]
